FAERS Safety Report 8998012 (Version 1)
Quarter: 2013Q1

REPORT INFORMATION
  Report Type: Spontaneous
  Country: US (occurrence: US)
  Receive Date: 20130104
  Receipt Date: 20130104
  Transmission Date: 20140127
  Serious: Yes (Hospitalization)
  Sender: FDA-Public Use
  Company Number: US-ASTRAZENECA-2012SE95495

PATIENT
  Age: 40 Year
  Sex: Female
  Weight: 105.5 kg

DRUGS (27)
  1. TOPROL XL [Suspect]
     Indication: HYPERTENSION
     Route: 048
     Dates: start: 20120418, end: 20121217
  2. TOPROL XL [Suspect]
     Indication: HYPERTENSION
     Route: 048
     Dates: end: 20120712
  3. TOPROL XL [Suspect]
     Indication: HYPERTENSION
     Route: 048
     Dates: start: 20120716
  4. NEXIUM [Suspect]
     Indication: PROPHYLAXIS AGAINST GASTROINTESTINAL ULCER
     Route: 048
     Dates: start: 20110520, end: 20110609
  5. PRILOSEC [Suspect]
     Indication: GASTROOESOPHAGEAL REFLUX DISEASE
     Route: 048
     Dates: start: 20120410
  6. PRILOSEC [Suspect]
     Indication: PANCREATITIS RELAPSING
     Route: 048
     Dates: start: 20120410
  7. CELECOXIB,IBUPROFEN,NAPROXEN,PLACEBO [Suspect]
     Indication: OSTEOARTHRITIS
     Route: 048
     Dates: start: 20110203, end: 20110222
  8. ZANAFLEX [Suspect]
     Indication: BACK PAIN
     Route: 048
     Dates: start: 20120418, end: 20120712
  9. NEURONTIN [Suspect]
     Indication: DIABETIC NEUROPATHY
     Route: 048
     Dates: start: 20110704
  10. CELEXA [Concomitant]
     Indication: ANXIETY
     Dates: start: 20110706
  11. SINGULAIR [Concomitant]
     Indication: RHINITIS ALLERGIC
     Dates: start: 20110706
  12. SINGULAIR [Concomitant]
     Indication: ASTHMA
     Dates: start: 20110706
  13. VENTOLIN HFA [Concomitant]
     Dates: start: 20110706
  14. ALBUTEROL [Concomitant]
     Indication: ASTHMA
     Dates: start: 20110706
  15. CREON 24 [Concomitant]
     Indication: PANCREATITIS RELAPSING
     Dates: start: 20120405
  16. ADVAIR [Concomitant]
     Indication: ASTHMA
     Dates: start: 20120410
  17. TRICOR [Concomitant]
     Indication: HYPERTRIGLYCERIDAEMIA
     Dates: start: 20120410
  18. GLIPIZIDE XL [Concomitant]
     Indication: TYPE 2 DIABETES MELLITUS
     Dates: start: 20120622
  19. CLARITIN [Concomitant]
     Indication: RHINITIS ALLERGIC
     Dates: start: 20120410
  20. VESICARE [Concomitant]
     Indication: HYPERTONIC BLADDER
     Dates: start: 20120410
  21. LIDODERM PATCH [Concomitant]
     Indication: BACK PAIN
     Dates: start: 20120410
  22. HUMALOG [Concomitant]
     Indication: TYPE 2 DIABETES MELLITUS
     Dates: start: 20120410
  23. VALIUM [Concomitant]
     Indication: ANXIETY
     Dates: start: 20120410
  24. VALIUM [Concomitant]
     Indication: INSOMNIA
     Dates: start: 20120410
  25. LEVEMIR [Concomitant]
     Indication: TYPE 2 DIABETES MELLITUS
     Dates: start: 20120418
  26. PRAVACHOL [Concomitant]
     Dates: start: 20120418
  27. LOPID [Concomitant]
     Dates: start: 20120418

REACTIONS (11)
  - Syncope [Recovered/Resolved]
  - Cholelithiasis [Unknown]
  - Ecchymosis [Unknown]
  - Excoriation [Unknown]
  - Dizziness [Unknown]
  - Hepatomegaly [Not Recovered/Not Resolved]
  - Hepatic infarction [Not Recovered/Not Resolved]
  - Hepatic steatosis [Unknown]
  - Tachycardia [Recovered/Resolved]
  - Liver disorder [Not Recovered/Not Resolved]
  - Peripancreatic fluid collection [Not Recovered/Not Resolved]
